FAERS Safety Report 6554467-3 (Version None)
Quarter: 2010Q1

REPORT INFORMATION
  Report Type: 
  Country: None (occurrence: None)
  Receive Date: 20100125
  Receipt Date: 20100125
  Transmission Date: 20100710
  Serious: Yes (Death, Hospitalization)
  Sender: FDA-Public Use
  Company Number: None

PATIENT
  Age: 56 Year
  Sex: Female
  Weight: 98.2038 kg

DRUGS (11)
  1. INVEGA SUSTENNA [Suspect]
     Indication: BIPOLAR DISORDER
     Dosage: 234MG ONCE IM
     Route: 030
     Dates: start: 20091214, end: 20091222
  2. SEROQUEL XR [Concomitant]
  3. LEVOTHYROXINE SODIUM [Concomitant]
  4. DUCOSATE [Concomitant]
  5. TOPROL-XL [Concomitant]
  6. SIMVASTATIN [Concomitant]
  7. LOARAZEPAN [Concomitant]
  8. DRISDOL [Concomitant]
  9. XALATAN GGTS [Concomitant]
  10. TIMOLOL GGTS [Concomitant]
  11. BENADRYL [Concomitant]

REACTIONS (1)
  - UNEVALUABLE EVENT [None]
